FAERS Safety Report 11694117 (Version 1)
Quarter: 2015Q4

REPORT INFORMATION
  Report Type: Spontaneous
  Country: FR (occurrence: FR)
  Receive Date: 20151103
  Receipt Date: 20151103
  Transmission Date: 20160304
  Serious: Yes (Death)
  Sender: FDA-Public Use
  Company Number: FR-SA-2015SA173773

PATIENT
  Age: 78 Year
  Sex: Male

DRUGS (7)
  1. XARELTO [Suspect]
     Active Substance: RIVAROXABAN
     Indication: ATRIAL FIBRILLATION
     Route: 048
  2. GRANOCYTE [Suspect]
     Active Substance: LENOGRASTIM
     Route: 058
     Dates: start: 201506, end: 201507
  3. LOVENOX [Suspect]
     Active Substance: ENOXAPARIN SODIUM
     Route: 065
  4. DETICENE [Suspect]
     Active Substance: DACARBAZINE
     Indication: HODGKIN^S DISEASE
     Route: 042
     Dates: start: 201506, end: 201507
  5. ADRIBLASTINE [Suspect]
     Active Substance: DOXORUBICIN
     Indication: HODGKIN^S DISEASE
     Dosage: TREATMENT DATE/DURATION: 1 MONTH
     Route: 042
     Dates: start: 201506, end: 201507
  6. BLEOMYCIN [Suspect]
     Active Substance: BLEOMYCIN SULFATE
     Indication: HODGKIN^S DISEASE
     Dosage: TREATMENT DATE/DURATION: 1 MONTH
     Route: 042
     Dates: start: 201506, end: 201507
  7. VELBE [Suspect]
     Active Substance: VINBLASTINE SULFATE
     Indication: HODGKIN^S DISEASE
     Dosage: TREATMENT DATE/DURATION: 1 MONTH
     Route: 042
     Dates: start: 201506, end: 201507

REACTIONS (1)
  - Thrombocytosis [Fatal]

NARRATIVE: CASE EVENT DATE: 201508
